FAERS Safety Report 7001014-8 (Version None)
Quarter: 2010Q3

REPORT INFORMATION
  Report Type: 
  Country: None (occurrence: None)
  Receive Date: 20100920
  Receipt Date: 20100412
  Transmission Date: 20110219
  Serious: Yes (Hospitalization)
  Sender: FDA-Public Use
  Company Number: US-ASTRAZENECA-2009SE13353

PATIENT
  Age: 20881 Day
  Sex: Female

DRUGS (9)
  1. SEROQUEL [Suspect]
     Route: 048
     Dates: start: 20020821
  2. SEROQUEL [Suspect]
     Route: 048
     Dates: start: 20090710
  3. SERTRALINE HYDROCHLORIDE [Concomitant]
     Route: 048
     Dates: start: 20090324
  4. AMBIEN [Concomitant]
     Dosage: TAKE TWO TABLETS AT NIGHT
     Route: 048
     Dates: start: 20020814
  5. AMBIEN [Concomitant]
     Route: 048
     Dates: start: 20090325
  6. CLONAZEPAM [Concomitant]
     Dosage: TAKE 1 TABLET THREE TIMES A DAY AND TWO TABLETS AT NIGHT
     Route: 048
     Dates: start: 20020814
  7. CLONAZEPAM [Concomitant]
     Dosage: TAKE 1 TABLET THREE TIMES A DAY AND TWO TABLETS AT NIGHT
     Route: 048
     Dates: start: 20080617
  8. FLUOXETINE [Concomitant]
     Dosage: TAKE 4 TABLET IN A DAY
     Route: 048
     Dates: start: 20020821
  9. FLUOXETINE [Concomitant]
     Dosage: THREE TABLETS ONCE  A DAY
     Route: 048
     Dates: start: 20080617

REACTIONS (2)
  - DIABETES MELLITUS [None]
  - DIABETIC COMA [None]
